FAERS Safety Report 9068445 (Version 1)
Quarter: 2013Q1

REPORT INFORMATION
  Report Type: Spontaneous
  Country: GB (occurrence: GB)
  Receive Date: 20130128
  Receipt Date: 20130128
  Transmission Date: 20140127
  Serious: Yes (Other)
  Sender: FDA-Public Use
  Company Number: PHHY2013GB005770

PATIENT
  Age: 68 Year
  Sex: Female
  Weight: 75 kg

DRUGS (5)
  1. METHOTREXATE [Suspect]
     Indication: RHEUMATOID ARTHRITIS
     Dosage: 15 MG, QW
     Route: 048
     Dates: start: 20121213
  2. RISEDRONATE SODIUM [Suspect]
     Indication: OSTEOPOROSIS PROPHYLAXIS
     Dosage: 35 MG, QW
     Route: 048
     Dates: start: 20121213
  3. PLAQUENIL [Suspect]
     Indication: RHEUMATOID ARTHRITIS
     Dosage: STRENGTH: 200 MG
     Route: 048
     Dates: start: 20121213
  4. FOLIC ACID [Concomitant]
     Indication: RHEUMATOID ARTHRITIS
     Route: 048
     Dates: start: 20121213
  5. PREDNISOLONE [Concomitant]
     Indication: RHEUMATOID ARTHRITIS
     Dosage: 10 MG, QD
     Route: 048
     Dates: start: 20121213

REACTIONS (2)
  - Oesophageal spasm [Recovered/Resolved]
  - Anaphylactic reaction [Recovered/Resolved]
